FAERS Safety Report 25611130 (Version 2)
Quarter: 2025Q3

REPORT INFORMATION
  Report Type: Spontaneous
  Country: US (occurrence: US)
  Receive Date: 20250728
  Receipt Date: 20250806
  Transmission Date: 20251021
  Serious: Yes (Life-Threatening, Hospitalization, Other)
  Sender: AUROBINDO
  Company Number: US-MLMSERVICE-20250710-PI575520-00272-1

PATIENT
  Age: 35 Year
  Sex: Female

DRUGS (2)
  1. PROGESTERONE [Suspect]
     Active Substance: PROGESTERONE
     Indication: In vitro fertilisation
     Route: 030
  2. HERBALS [Concomitant]
     Active Substance: HERBALS
     Indication: In vitro fertilisation

REACTIONS (2)
  - Eosinophilic pneumonia acute [Recovering/Resolving]
  - Leukocytosis [Recovering/Resolving]
